FAERS Safety Report 10564055 (Version 2)
Quarter: 2014Q4

REPORT INFORMATION
  Report Type: Report from Study
  Country: CA (occurrence: CA)
  Receive Date: 20141104
  Receipt Date: 20141104
  Transmission Date: 20150529
  Serious: Yes (Hospitalization)
  Sender: FDA-Public Use
  Company Number: CA-ABBVIE-14K-028-1290341-00

PATIENT
  Age: 51 Year
  Sex: Female
  Weight: 52.9 kg

DRUGS (8)
  1. SERTRALINE [Concomitant]
     Active Substance: SERTRALINE HYDROCHLORIDE
     Indication: DEPRESSION
     Route: 048
  2. ZOLOFT [Concomitant]
     Active Substance: SERTRALINE HYDROCHLORIDE
     Indication: PRODUCT USED FOR UNKNOWN INDICATION
  3. PREDNISONE. [Concomitant]
     Active Substance: PREDNISONE
     Indication: CROHN^S DISEASE
     Dosage: DOSE TAPERED
     Route: 048
     Dates: end: 20140923
  4. RABEPRAZOLE [Concomitant]
     Active Substance: RABEPRAZOLE
     Indication: PRODUCT USED FOR UNKNOWN INDICATION
     Route: 048
  5. HUMIRA [Suspect]
     Active Substance: ADALIMUMAB
     Indication: CROHN^S DISEASE
     Route: 058
     Dates: start: 20140628, end: 20140909
  6. PREDNISONE. [Concomitant]
     Active Substance: PREDNISONE
     Route: 048
     Dates: start: 201409
  7. IV FLUIDS [Concomitant]
     Active Substance: UNSPECIFIED INGREDIENT
     Indication: PRODUCT USED FOR UNKNOWN INDICATION
  8. VITAMIN D3 [Concomitant]
     Active Substance: CHOLECALCIFEROL
     Indication: PRODUCT USED FOR UNKNOWN INDICATION
     Route: 048

REACTIONS (17)
  - Malaise [Recovered/Resolved]
  - Drug ineffective [Unknown]
  - Intestinal mass [Unknown]
  - Malaise [Unknown]
  - Night sweats [Not Recovered/Not Resolved]
  - Tachycardia [Unknown]
  - Frequent bowel movements [Unknown]
  - Faecal incontinence [Unknown]
  - Crohn^s disease [Not Recovered/Not Resolved]
  - Hypophagia [Unknown]
  - Asthenia [Unknown]
  - Mobility decreased [Unknown]
  - Nausea [Recovered/Resolved]
  - Fluid intake reduced [Unknown]
  - Proctalgia [Unknown]
  - Fatigue [Unknown]
  - Menopause [Unknown]

NARRATIVE: CASE EVENT DATE: 2014
